FAERS Safety Report 6713503-1 (Version None)
Quarter: 2010Q2

REPORT INFORMATION
  Report Type: 
  Country: None (occurrence: None)
  Receive Date: 20100504
  Receipt Date: 20100430
  Transmission Date: 20101027
  Serious: Yes (Other)
  Sender: FDA-Public Use
  Company Number: 009492

PATIENT
  Age: 64 Year
  Sex: Male

DRUGS (5)
  1. BUSULFEX [Suspect]
     Indication: STEM CELL TRANSPLANT
     Dosage: 0.8MG/KG Q6HR, INTRAVENOUS
     Route: 042
  2. FLUDARABINE PHOSPHATE [Concomitant]
  3. IMATINIB MESYLATE [Concomitant]
  4. TACROLIMUS [Concomitant]
  5. DASATINIB [Concomitant]

REACTIONS (3)
  - HAEMATOTOXICITY [None]
  - NEUTROPENIA [None]
  - PLEURAL EFFUSION [None]
